FAERS Safety Report 13855262 (Version 1)
Quarter: 2017Q3

REPORT INFORMATION
  Report Type: Spontaneous
  Country: US (occurrence: US)
  Receive Date: 20170810
  Receipt Date: 20170810
  Transmission Date: 20171127
  Serious: No
  Sender: FDA-Public Use
  Company Number: US-TEIKOKU PHARMA USA-TPU2017-00351

PATIENT
  Sex: Female
  Weight: 95.34 kg

DRUGS (7)
  1. TORODOL [Concomitant]
     Indication: MIGRAINE
  2. MELATONIN [Concomitant]
     Active Substance: MELATONIN
     Indication: INSOMNIA
  3. NEURONTIN [Concomitant]
     Active Substance: GABAPENTIN
     Indication: FIBROMYALGIA
  4. LIDODERM [Suspect]
     Active Substance: LIDOCAINE
     Indication: FIBROMYALGIA
     Dates: start: 201704
  5. ZONISAMIDE. [Concomitant]
     Active Substance: ZONISAMIDE
     Indication: MIGRAINE
     Dosage: 100MG ONE AM TWO PM
  6. FLEXERIL [Concomitant]
     Active Substance: CYCLOBENZAPRINE HYDROCHLORIDE
     Indication: FIBROMYALGIA
  7. PHENERGAN [Concomitant]
     Active Substance: PROMETHAZINE HYDROCHLORIDE
     Indication: MIGRAINE
     Route: 048

REACTIONS (5)
  - Rash erythematous [None]
  - Wrong technique in product usage process [None]
  - Application site rash [Unknown]
  - Rash pruritic [None]
  - Product adhesion issue [None]
